FAERS Safety Report 24540883 (Version 2)
Quarter: 2024Q4

REPORT INFORMATION
  Report Type: Spontaneous
  Country: DE (occurrence: DE)
  Receive Date: 20241023
  Receipt Date: 20241202
  Transmission Date: 20250114
  Serious: Yes (Other)
  Sender: MYLAN
  Company Number: DE-VITABALANS-096-2024

PATIENT
  Age: 64 Year
  Sex: Female

DRUGS (1)
  1. LOPERAMIDE [Suspect]
     Active Substance: LOPERAMIDE
     Indication: Product used for unknown indication
     Dosage: 8 MILLIGRAM
     Route: 065

REACTIONS (2)
  - Pancreatic duct dilatation [Unknown]
  - Pancreatitis chronic [Unknown]
